FAERS Safety Report 4448989-9 (Version None)
Quarter: 2004Q3

REPORT INFORMATION
  Report Type: 
  Country: None (occurrence: None)
  Receive Date: 20040909
  Receipt Date: 20040823
  Transmission Date: 20050211
  Serious: Yes (Other)
  Sender: FDA-Public Use
  Company Number: USA040772064

PATIENT
  Age: 70 Year
  Sex: Female
  Weight: 55 kg

DRUGS (2)
  1. FORTEO [Suspect]
     Indication: OSTEOPOROSIS
     Dosage: 20 UG DAY
     Dates: start: 20030601, end: 20040601
  2. PREDNISONE [Concomitant]

REACTIONS (8)
  - ANAEMIA [None]
  - CHONDROMA [None]
  - CONDITION AGGRAVATED [None]
  - FEMUR FRACTURE [None]
  - FOOT FRACTURE [None]
  - HYPERGAMMAGLOBULINAEMIA BENIGN MONOCLONAL [None]
  - RHEUMATOID ARTHRITIS [None]
  - URINE CALCIUM DECREASED [None]
